FAERS Safety Report 6559922-8 (Version None)
Quarter: 2010Q1

REPORT INFORMATION
  Report Type: 
  Country: None (occurrence: None)
  Receive Date: 20100129
  Receipt Date: 20090914
  Transmission Date: 20100710
  Serious: No
  Sender: FDA-Public Use
  Company Number: US-ABBOTT-09P-163-0597952-00

PATIENT
  Sex: Female
  Weight: 65.376 kg

DRUGS (27)
  1. HUMIRA [Suspect]
     Indication: RHEUMATOID ARTHRITIS
     Route: 058
     Dates: start: 20030101, end: 20090501
  2. HUMIRA [Suspect]
     Dates: start: 20090501
  3. NITROGLYCERIN [Concomitant]
     Indication: ANGINA PECTORIS
     Route: 062
  4. FOLIC ACID [Concomitant]
     Indication: MEDICAL DIET
     Route: 048
  5. HYDROCODONE [Concomitant]
     Indication: PAIN
     Dosage: 5/500 MG TWICE DAILY
     Route: 048
  6. LIDODERM [Concomitant]
     Indication: PAIN
     Dosage: 700 MG 12HR AS NEEDED
     Route: 062
  7. LASIX [Concomitant]
     Indication: FLUID RETENTION
     Route: 048
  8. PREDNISONE [Concomitant]
     Indication: DRUG USE FOR UNKNOWN INDICATION
     Route: 048
  9. METFORMIN [Concomitant]
     Indication: DIABETES MELLITUS
     Route: 048
  10. BUSPAR [Concomitant]
     Indication: ANXIETY
     Dosage: 1/2 - 10 MG TABLET TWICE DAILY
     Route: 048
  11. BISOBROLOL FUMARATE-HCTZ [Concomitant]
     Indication: HYPERTENSION
     Route: 048
  12. JANUVIA [Concomitant]
     Indication: DIABETES MELLITUS
     Route: 048
  13. AVOXAZ [Concomitant]
     Indication: SJOGREN'S SYNDROME
     Route: 048
  14. ULTRAM ER [Concomitant]
     Indication: PAIN
     Route: 048
  15. CLORAZEPATE DIAPOTASSIUM [Concomitant]
     Indication: INSOMNIA
     Route: 048
  16. LEVOTHYROXINE SODIUM [Concomitant]
     Indication: HYPOTHYROIDISM
     Route: 048
  17. ACIPHEX [Concomitant]
     Indication: DYSPEPSIA
     Route: 048
  18. METHOTREXATE [Concomitant]
     Indication: RHEUMATOID ARTHRITIS
     Route: 048
  19. CRESTOR [Concomitant]
     Indication: BLOOD CHOLESTEROL INCREASED
     Dosage: 1/2 - 20 MG TABLET ONCE DAILY
     Route: 048
  20. VIACTIVE CALCIUM [Concomitant]
     Indication: MEDICAL DIET
     Dosage: 2 SQUARES ONCE DAILY
     Route: 048
  21. LOVAZA [Concomitant]
     Indication: DRUG USE FOR UNKNOWN INDICATION
     Route: 048
  22. POTCHLORIDE [Concomitant]
     Indication: DRUG USE FOR UNKNOWN INDICATION
     Dosage: 10MEG TAB-2/AM,2/NOON,1/QHS AS DIRECTED
     Route: 048
  23. MULTI-VITAMINS [Concomitant]
     Indication: MEDICAL DIET
  24. GARLIC [Concomitant]
     Indication: CARDIOVASCULAR EVENT PROPHYLAXIS
     Route: 048
  25. PLAVIX [Concomitant]
     Indication: ANTICOAGULANT THERAPY
     Route: 048
  26. ALLEGRA D 24 HOUR [Concomitant]
     Indication: HYPERSENSITIVITY
  27. NITROSTAT [Concomitant]
     Indication: ANGINA PECTORIS
     Route: 060

REACTIONS (3)
  - DIARRHOEA [None]
  - DRUG DOSE OMISSION [None]
  - DRUG EFFECT DECREASED [None]
